FAERS Safety Report 21488037 (Version 2)
Quarter: 2022Q4

REPORT INFORMATION
  Report Type: Spontaneous
  Country: US (occurrence: US)
  Receive Date: 20221020
  Receipt Date: 20221103
  Transmission Date: 20230113
  Serious: Yes (Other)
  Sender: FDA-Public Use
  Company Number: US-PRINSTON PHARMACEUTICAL INC.-2022PRN00380

PATIENT
  Age: 82 Year
  Sex: Male
  Weight: 77.098 kg

DRUGS (6)
  1. LOSARTAN POTASSIUM AND HYDROCHLOROTHIAZIDE [Suspect]
     Active Substance: HYDROCHLOROTHIAZIDE\LOSARTAN POTASSIUM
     Indication: Hypertension
     Dosage: 1 TABLET (100 MG/12.5 MG)
     Route: 048
     Dates: start: 2018, end: 20221014
  2. IRBESARTAN [Suspect]
     Active Substance: IRBESARTAN
     Dosage: UNK
     Dates: start: 20221015
  3. METOPROLOL [Concomitant]
     Active Substance: METOPROLOL
     Dosage: 50 MG, 2X/DAY
  4. METOPROLOL [Concomitant]
     Active Substance: METOPROLOL
     Dosage: 75 MG
  5. VICTOZA [Concomitant]
     Active Substance: LIRAGLUTIDE
  6. PRANDIN [Concomitant]
     Active Substance: REPAGLINIDE
     Dosage: UNK, AS NEEDED

REACTIONS (5)
  - Hypertension [Not Recovered/Not Resolved]
  - COVID-19 [Recovered/Resolved]
  - Drug ineffective [Recovered/Resolved]
  - Drug tolerance [Recovered/Resolved]
  - Asthenia [Recovered/Resolved]

NARRATIVE: CASE EVENT DATE: 20220101
